FAERS Safety Report 9438181 (Version 1)
Quarter: 2013Q3

REPORT INFORMATION
  Report Type: Spontaneous
  Country: US (occurrence: US)
  Receive Date: 20130802
  Receipt Date: 20130802
  Transmission Date: 20140515
  Serious: No
  Sender: FDA-Public Use
  Company Number: US-BRISTOL-MYERS SQUIBB COMPANY-17355231

PATIENT
  Age: 81 Year
  Sex: Male
  Weight: 55.33 kg

DRUGS (4)
  1. COUMADIN [Suspect]
     Indication: ATRIAL FIBRILLATION
     Dosage: DOSE REDUCED FROM 2MG TO 0.5 MG
  2. LOSARTAN [Concomitant]
  3. FUROSEMIDE [Concomitant]
  4. POTASSIUM [Concomitant]

REACTIONS (2)
  - International normalised ratio fluctuation [Unknown]
  - Product physical issue [Unknown]
